FAERS Safety Report 10211383 (Version 1)
Quarter: 2014Q2

REPORT INFORMATION
  Report Type: Spontaneous
  Country: US (occurrence: None)
  Receive Date: 20140530
  Receipt Date: 20140530
  Transmission Date: 20141212
  Serious: No
  Sender: FDA-Public Use
  Company Number: None

PATIENT
  Age: 42 Year
  Sex: Male
  Weight: 97.7 kg

DRUGS (2)
  1. QUETIAPINE [Suspect]
     Indication: DEPRESSION
     Dates: start: 20140228, end: 20140318
  2. QUETIAPINE [Suspect]
     Indication: POST-TRAUMATIC STRESS DISORDER
     Dates: start: 20140228, end: 20140318

REACTIONS (2)
  - Dyskinesia [None]
  - Dyspnoea [None]
